FAERS Safety Report 6011618-7 (Version None)
Quarter: 2008Q4

REPORT INFORMATION
  Report Type: 
  Country: None (occurrence: None)
  Receive Date: 20081218
  Receipt Date: 20071017
  Transmission Date: 20090506
  Serious: Yes (Death, Other)
  Sender: FDA-Public Use
  Company Number: US-ROCHE-526400

PATIENT
  Age: 25 Year

DRUGS (3)
  1. CLONAZEPAM [Suspect]
     Indication: DRUG USE FOR UNKNOWN INDICATION
     Dosage: ROUTE REPORTED AS INGESTION. ACUTE ON CHRONIC.
     Route: 048
  2. AMITRIPTYLINE HCL [Suspect]
     Indication: DRUG USE FOR UNKNOWN INDICATION
     Dosage: ROUTE REPORTED AS INGESTION. ACUTE ON CHRONIC.
     Route: 048
  3. CLONIDINE [Suspect]
     Indication: DRUG USE FOR UNKNOWN INDICATION
     Dosage: ROUTE REPORTED AS INGESTION. ACUTE ON CHRONIC.
     Route: 048

REACTIONS (3)
  - CARDIAC ARREST [None]
  - DRUG TOXICITY [None]
  - RESPIRATORY ARREST [None]
